FAERS Safety Report 6268200-6 (Version None)
Quarter: 2009Q3

REPORT INFORMATION
  Report Type: 
  Country: None (occurrence: None)
  Receive Date: 20090714
  Receipt Date: 20090714
  Transmission Date: 20100115
  Serious: Yes (Hospitalization)
  Sender: FDA-Public Use
  Company Number: None

PATIENT
  Age: 50 Year
  Sex: Female
  Weight: 119.5 kg

DRUGS (5)
  1. GEMCITABINE [Suspect]
     Indication: BREAST CANCER
     Dosage: 1000 MG/M2 IV IN 250 ML AND NORMAL SALINE OVER 30 MIN ON DAY 1
  2. OXALIPLATIN [Suspect]
     Indication: BREAST CANCER
  3. LISINOPRIL AND HYDROCHLOROTHIAZIDE [Concomitant]
  4. K-DUR [Concomitant]
  5. LEVAQUIN [Concomitant]

REACTIONS (2)
  - BLOOD CULTURE POSITIVE [None]
  - HYPERGLYCAEMIA [None]
